FAERS Safety Report 25317253 (Version 1)
Quarter: 2025Q2

REPORT INFORMATION
  Report Type: Spontaneous
  Country: IT (occurrence: IT)
  Receive Date: 20250515
  Receipt Date: 20250515
  Transmission Date: 20250716
  Serious: Yes (Other)
  Sender: AUROBINDO
  Company Number: IT-UCBSA-2025023809

PATIENT
  Age: 52 Year
  Sex: Male

DRUGS (2)
  1. CARBAMAZEPINE [Suspect]
     Active Substance: CARBAMAZEPINE
     Indication: Retrograde amnesia
     Dosage: 800 MILLIGRAM, ONCE A DAY (400 MILLIGRAM, 2X/DAY (BID))
     Route: 065
  2. LEVETIRACETAM [Suspect]
     Active Substance: LEVETIRACETAM
     Indication: Retrograde amnesia
     Route: 065

REACTIONS (2)
  - Temporal lobe epilepsy [Unknown]
  - Off label use [Unknown]
